APPROVED DRUG PRODUCT: DIPYRIDAMOLE
Active Ingredient: DIPYRIDAMOLE
Strength: 5MG/ML
Dosage Form/Route: INJECTABLE;INJECTION
Application: A074521 | Product #001 | TE Code: AP
Applicant: HIKMA PHARMACEUTICALS USA INC
Approved: Oct 18, 1996 | RLD: No | RS: No | Type: RX